FAERS Safety Report 21377224 (Version 1)
Quarter: 2022Q3

REPORT INFORMATION
  Report Type: Spontaneous
  Country: US (occurrence: None)
  Receive Date: 20220925
  Receipt Date: 20220925
  Transmission Date: 20221026
  Serious: Yes (Death, Life-Threatening, Hospitalization, Disabling, Other)
  Sender: FDA-Public Use
  Company Number: None

PATIENT
  Age: 70 Year
  Sex: Female
  Weight: 47.25 kg

DRUGS (1)
  1. TIKOSYN [Suspect]
     Active Substance: DOFETILIDE

REACTIONS (8)
  - Sleep disorder [None]
  - Fatigue [None]
  - Agonal respiration [None]
  - Ventricular fibrillation [None]
  - Coma [None]
  - Electrocardiogram QT prolonged [None]
  - Contraindicated product prescribed [None]
  - Drug monitoring procedure not performed [None]

NARRATIVE: CASE EVENT DATE: 20220823
